FAERS Safety Report 24296233 (Version 7)
Quarter: 2024Q4

REPORT INFORMATION
  Report Type: Other
  Country: US (occurrence: US)
  Receive Date: 20240909
  Receipt Date: 20241211
  Transmission Date: 20250115
  Serious: Yes (Death, Hospitalization, Other)
  Sender: INTERCEPT PHARMACEUTICALS
  Company Number: US-INTERCEPT-PM2024001748

PATIENT
  Sex: Female

DRUGS (2)
  1. OCALIVA [Suspect]
     Active Substance: OBETICHOLIC ACID
     Indication: Primary biliary cholangitis
     Dosage: 5 MILLIGRAM, QOD
     Route: 048
     Dates: start: 202406, end: 20240710
  2. OCALIVA [Suspect]
     Active Substance: OBETICHOLIC ACID
     Dosage: 5 MILLIGRAM, QD
     Route: 048
     Dates: start: 20240711, end: 202409

REACTIONS (11)
  - Cardiac failure congestive [Fatal]
  - Hypertension [Fatal]
  - Hypothyroidism [Fatal]
  - General physical health deterioration [Fatal]
  - Acute kidney injury [Unknown]
  - Dehydration [Unknown]
  - Ascites [Unknown]
  - Dysphagia [Not Recovered/Not Resolved]
  - Haematuria [Not Recovered/Not Resolved]
  - Blood bilirubin increased [Not Recovered/Not Resolved]
  - Off label use [Recovered/Resolved]

NARRATIVE: CASE EVENT DATE: 20240101
